FAERS Safety Report 20694010 (Version 1)
Quarter: 2022Q2

REPORT INFORMATION
  Report Type: Report from Study
  Country: CN (occurrence: None)
  Receive Date: 20220411
  Receipt Date: 20220411
  Transmission Date: 20220720
  Serious: Yes (Hospitalization)
  Sender: FDA-Public Use
  Company Number: CN-ROCHE-3054557

PATIENT
  Age: 38 Year
  Sex: Female
  Weight: 65 kg

DRUGS (24)
  1. BEVACIZUMAB [Suspect]
     Active Substance: BEVACIZUMAB
     Indication: Non-small cell lung cancer
     Route: 041
     Dates: start: 20220216, end: 20220216
  2. BEVACIZUMAB [Suspect]
     Active Substance: BEVACIZUMAB
     Route: 041
     Dates: start: 20220311, end: 20220311
  3. PACLITAXEL [Suspect]
     Active Substance: PACLITAXEL
     Indication: Non-small cell lung cancer
     Route: 041
     Dates: start: 20220216, end: 20220216
  4. PACLITAXEL [Suspect]
     Active Substance: PACLITAXEL
     Route: 041
     Dates: start: 20220311, end: 20220311
  5. CARBOPLATIN [Suspect]
     Active Substance: CARBOPLATIN
     Indication: Non-small cell lung cancer
     Route: 041
     Dates: start: 20220216, end: 20220216
  6. CARBOPLATIN [Suspect]
     Active Substance: CARBOPLATIN
     Route: 041
     Dates: start: 20220311, end: 20220311
  7. CAFFEIC ACID [Concomitant]
     Active Substance: CAFFEIC ACID
     Route: 048
     Dates: start: 20220217
  8. SHENG XUE BAO [Concomitant]
     Route: 048
     Dates: start: 20220217
  9. AZTREONAM [Concomitant]
     Active Substance: AZTREONAM
     Route: 041
     Dates: start: 20220228, end: 20220302
  10. ORNIDAZOLE [Concomitant]
     Active Substance: ORNIDAZOLE
     Route: 041
     Dates: start: 20220228, end: 20220302
  11. ACETAMINOPHEN [Concomitant]
     Active Substance: ACETAMINOPHEN
     Indication: Pyrexia
     Dosage: 2 CAPSULES
     Route: 048
     Dates: start: 20220227, end: 20220302
  12. ACETAMINOPHEN [Concomitant]
     Active Substance: ACETAMINOPHEN
     Indication: Analgesic therapy
  13. CAFFEINE [Concomitant]
     Active Substance: CAFFEINE
     Indication: Pyrexia
     Dosage: 2 CAPSULES
     Route: 048
     Dates: start: 20220227, end: 20220302
  14. CAFFEINE [Concomitant]
     Active Substance: CAFFEINE
     Indication: Analgesic therapy
  15. ARTIFICIAL COW BEZOAR [Concomitant]
     Indication: Analgesic therapy
     Dosage: 2 CAPSULES
     Route: 048
     Dates: start: 20220227, end: 20220302
  16. ARTIFICIAL COW BEZOAR [Concomitant]
     Indication: Pyrexia
  17. CHLORPHENIRAMINE MALEATE [Concomitant]
     Active Substance: CHLORPHENIRAMINE MALEATE
     Indication: Analgesic therapy
     Dosage: 2 CAPSULES
     Route: 048
     Dates: start: 20220227, end: 20220302
  18. CHLORPHENIRAMINE MALEATE [Concomitant]
     Active Substance: CHLORPHENIRAMINE MALEATE
     Indication: Pyrexia
  19. IBUPROFEN [Concomitant]
     Active Substance: IBUPROFEN
     Indication: Pyrexia
     Route: 048
     Dates: start: 20220227, end: 20220302
  20. RECOMBINANT HUMAN GRANULOCYTE-MACROPHAGE COLONY STIMULATING FACTOR (UN [Concomitant]
     Indication: Leukopenia
     Dates: start: 20220301, end: 20220302
  21. LEVOFLOXACIN LACTATE [Concomitant]
     Active Substance: LEVOFLOXACIN LACTATE
     Indication: Pneumonia
     Route: 041
  22. SODIUM CHLORIDE [Concomitant]
     Active Substance: SODIUM CHLORIDE
     Indication: Pneumonia
     Route: 041
  23. ETHAMSYLATE [Concomitant]
     Active Substance: ETHAMSYLATE
     Indication: Haemoptysis
     Route: 041
     Dates: start: 20220109, end: 20220113
  24. DI YU SHENG BAI [Concomitant]
     Indication: White blood cell count decreased
     Dosage: 3 TABLETS
     Route: 048
     Dates: start: 20220217

REACTIONS (1)
  - Abscess [Recovered/Resolved]

NARRATIVE: CASE EVENT DATE: 20220303
